FAERS Safety Report 20024318 (Version 1)
Quarter: 2021Q4

REPORT INFORMATION
  Report Type: Spontaneous
  Country: US (occurrence: None)
  Receive Date: 20211102
  Receipt Date: 20211102
  Transmission Date: 20220303
  Serious: Yes (Other)
  Sender: FDA-Public Use
  Company Number: US-ROCHE-2948539

PATIENT
  Age: 76 Year
  Sex: Male
  Weight: 137.7 kg

DRUGS (2)
  1. AVASTIN [Suspect]
     Active Substance: BEVACIZUMAB
     Indication: Hepatocellular carcinoma
     Dosage: GIVEN WITH TECENTRIQ/ 15MG/KG ;ONGOING: YES
     Route: 042
     Dates: start: 20210122
  2. TECENTRIQ [Suspect]
     Active Substance: ATEZOLIZUMAB
     Indication: Hepatocellular carcinoma
     Dosage: GIVEN WITH AVASTIN ;ONGOING: YES
     Route: 042
     Dates: start: 20210122

REACTIONS (1)
  - Hypertensive emergency [Unknown]

NARRATIVE: CASE EVENT DATE: 20211029
